FAERS Safety Report 19217855 (Version 1)
Quarter: 2021Q2

REPORT INFORMATION
  Report Type: Spontaneous
  Country: US (occurrence: US)
  Receive Date: 20210505
  Receipt Date: 20210505
  Transmission Date: 20210717
  Serious: No
  Sender: FDA-Public Use
  Company Number: US-ASTRAZENECA-2021A290466

PATIENT
  Sex: Female
  Weight: 97.5 kg

DRUGS (1)
  1. BYDUREON BCISE [Suspect]
     Active Substance: EXENATIDE
     Route: 058
     Dates: start: 20210405

REACTIONS (11)
  - Injection site bruising [Unknown]
  - Dizziness [Unknown]
  - Device leakage [Unknown]
  - Feeling abnormal [Unknown]
  - Anxiety [Unknown]
  - Panic disorder [Unknown]
  - Injection site pruritus [Unknown]
  - Blood glucose decreased [Unknown]
  - Injection site pain [Unknown]
  - Injection site extravasation [Unknown]
  - Product use issue [Unknown]
